FAERS Safety Report 5619193-3 (Version None)
Quarter: 2008Q1

REPORT INFORMATION
  Report Type: 
  Country: None (occurrence: None)
  Receive Date: 20080207
  Receipt Date: 20080205
  Transmission Date: 20080703
  Serious: Yes (Hospitalization, Disabling, Other)
  Sender: FDA-Public Use
  Company Number: GB-MERCK-0801GBR00081

PATIENT
  Age: 76 Year
  Sex: Female

DRUGS (9)
  1. ZOCOR [Suspect]
     Indication: CARDIAC DISORDER
     Route: 048
     Dates: end: 20071018
  2. FUSIDIC ACID [Suspect]
     Indication: ARTHRITIS BACTERIAL
     Route: 048
     Dates: start: 20070914, end: 20071022
  3. ASPIRIN [Concomitant]
     Indication: CARDIAC DISORDER
     Route: 048
  4. CLINDAMYCIN [Concomitant]
     Indication: ARTHRITIS BACTERIAL
     Route: 048
     Dates: start: 20070914, end: 20071027
  5. ACETAMINOPHEN AND CODEINE PHOSPHATE [Concomitant]
     Route: 048
  6. DOXAZOSIN MESYLATE [Concomitant]
     Route: 048
     Dates: end: 20071001
  7. FOLIC ACID [Concomitant]
     Route: 048
     Dates: end: 20071027
  8. METHOTREXATE [Concomitant]
     Route: 058
     Dates: end: 20071001
  9. RAMIPRIL [Concomitant]
     Indication: CARDIAC DISORDER
     Route: 048

REACTIONS (4)
  - DRUG INTERACTION [None]
  - LIVER FUNCTION TEST ABNORMAL [None]
  - MUSCULAR WEAKNESS [None]
  - MYOPATHY [None]
